FAERS Safety Report 19125526 (Version 3)
Quarter: 2021Q2

REPORT INFORMATION
  Report Type: Report from Study
  Country: US (occurrence: US)
  Receive Date: 20210413
  Receipt Date: 20210506
  Transmission Date: 20210717
  Serious: No
  Sender: FDA-Public Use
  Company Number: US-AMGEN-USASP2021055024

PATIENT
  Age: 57 Year
  Sex: Female

DRUGS (12)
  1. CLOBETASOL [Concomitant]
     Active Substance: CLOBETASOL
  2. METRONIDAZOLE. [Concomitant]
     Active Substance: METRONIDAZOLE
  3. OTEZLA [Suspect]
     Active Substance: APREMILAST
     Indication: PSORIASIS
     Dosage: 30 MILLIGRAM, BID
     Route: 048
     Dates: start: 20180825, end: 202010
  4. SERTRALINE [Concomitant]
     Active Substance: SERTRALINE HYDROCHLORIDE
  5. AMITRIPTYLIN [Concomitant]
     Active Substance: AMITRIPTYLINE
  6. DOXYCYCLINE. [Concomitant]
     Active Substance: DOXYCYCLINE
  7. PRAVASTATIN. [Concomitant]
     Active Substance: PRAVASTATIN
  8. OTEZLA [Suspect]
     Active Substance: APREMILAST
     Dosage: 30 MILLIGRAM, BID
     Route: 048
     Dates: start: 2021
  9. BUPROPION. [Concomitant]
     Active Substance: BUPROPION
  10. SUMATRIPTAN. [Concomitant]
     Active Substance: SUMATRIPTAN
  11. DEXAMETHASONE. [Concomitant]
     Active Substance: DEXAMETHASONE
  12. OMEPRAZOLE. [Concomitant]
     Active Substance: OMEPRAZOLE

REACTIONS (2)
  - Psoriasis [Recovered/Resolved]
  - Product administration interrupted [Unknown]

NARRATIVE: CASE EVENT DATE: 202010
